FAERS Safety Report 9577603 (Version 1)
Quarter: 2013Q4

REPORT INFORMATION
  Report Type: Spontaneous
  Country: US (occurrence: US)
  Receive Date: 20131001
  Receipt Date: 20131001
  Transmission Date: 20140711
  Serious: No
  Sender: FDA-Public Use
  Company Number: US-AMGEN-USASP2013008757

PATIENT
  Age: 62 Year
  Sex: Male

DRUGS (4)
  1. ENBREL [Suspect]
     Indication: RHEUMATOID ARTHRITIS
     Dosage: 50 MG, QWK
     Route: 058
     Dates: start: 20121016
  2. FOLIC ACID [Concomitant]
     Dosage: 400 MUG, QD
     Route: 048
  3. LORATADINE [Concomitant]
     Dosage: 10 MG, PRN
     Route: 048
  4. METHOTREXATE [Concomitant]
     Dosage: 2.5 MG, QWK

REACTIONS (4)
  - Malaise [Recovering/Resolving]
  - Conjunctivitis [Recovering/Resolving]
  - Ear infection [Recovering/Resolving]
  - Sinusitis [Recovering/Resolving]
